FAERS Safety Report 15762975 (Version 1)
Quarter: 2018Q4

REPORT INFORMATION
  Report Type: Report from Study
  Country: US (occurrence: US)
  Receive Date: 20181226
  Receipt Date: 20181226
  Transmission Date: 20190205
  Serious: Yes (Hospitalization)
  Sender: FDA-Public Use
  Company Number: US-ACTELION-A-US2018-183842

PATIENT
  Age: 11 Month
  Sex: Male

DRUGS (2)
  1. BOSENTAN TABLET 32 MG PED US [Suspect]
     Active Substance: BOSENTAN
     Indication: PULMONARY ARTERIAL HYPERTENSION
     Dosage: 16 MG, BID
     Route: 049
     Dates: start: 20180817
  2. REVATIO [Concomitant]
     Active Substance: SILDENAFIL CITRATE
     Dosage: 14 MG, Q8H
     Dates: start: 201812

REACTIONS (1)
  - Hospitalisation [Not Recovered/Not Resolved]
